FAERS Safety Report 4809156-X (Version None)
Quarter: 2005Q4

REPORT INFORMATION
  Report Type: 
  Country: None (occurrence: None)
  Receive Date: 20051021
  Receipt Date: 20020523
  Transmission Date: 20060501
  Serious: Yes (Hospitalization, Other)
  Sender: FDA-Public Use
  Company Number: US_020584351

PATIENT
  Age: 66 Year
  Sex: Female
  Weight: 61 kg

DRUGS (10)
  1. ZYPREXA [Suspect]
     Indication: SCHIZOPHRENIA
     Dosage: 20 MG/DAY
     Dates: start: 20011108, end: 20020504
  2. TASMOLIN (BIPERIDEN) [Concomitant]
  3. PANTOSIN (PANTETHINE) [Concomitant]
  4. PRIMPERAN TAB [Concomitant]
  5. DIAZEPAM [Concomitant]
  6. PURSENNID (SENNA LEAF) [Concomitant]
  7. METLIGINE (MIDODRINE HYDROCHLORIDE) [Concomitant]
  8. SEROQUEL [Concomitant]
  9. HIBERNA (PROMETHAZINE HYDROCHLORIDE) [Concomitant]
  10. DOGMATYL (SULPIRIDE) [Concomitant]

REACTIONS (12)
  - ABASIA [None]
  - ANTICHOLINERGIC SYNDROME [None]
  - BACTERIURIA [None]
  - CONSTIPATION [None]
  - DECREASED ACTIVITY [None]
  - DECREASED APPETITE [None]
  - DIARRHOEA [None]
  - DYSURIA [None]
  - FAECES HARD [None]
  - URINARY RETENTION [None]
  - URINARY TRACT INFECTION [None]
  - WHITE BLOOD CELL COUNT DECREASED [None]
